FAERS Safety Report 23192790 (Version 1)
Quarter: 2023Q4

REPORT INFORMATION
  Report Type: Spontaneous
  Country: US (occurrence: US)
  Receive Date: 20231116
  Receipt Date: 20231116
  Transmission Date: 20240109
  Serious: Yes (Other)
  Sender: FDA-Public Use
  Company Number: US-PROCTER_AND_GAMBLE-GS23121770

PATIENT

DRUGS (3)
  1. DEVICE [Suspect]
     Active Substance: DEVICE
     Route: 002
  2. CREST PRO-HEALTH (STANNOUS FLUORIDE) [Suspect]
     Active Substance: STANNOUS FLUORIDE
     Route: 002
  3. DEVICE [Suspect]
     Active Substance: DEVICE
     Route: 002

REACTIONS (3)
  - Dental caries [Unknown]
  - Device ineffective [Unknown]
  - Drug ineffective [Unknown]
